FAERS Safety Report 4559640-1 (Version None)
Quarter: 2005Q1

REPORT INFORMATION
  Report Type: 
  Country: None (occurrence: None)
  Receive Date: 20050113
  Receipt Date: 20041012
  Transmission Date: 20050727
  Serious: Yes (Other)
  Sender: FDA-Public Use
  Company Number: 383188

PATIENT
  Age: 44 Year
  Sex: Male
  Weight: 61.2 kg

DRUGS (4)
  1. FUZEON [Suspect]
     Indication: DRUG USE FOR UNKNOWN INDICATION
     Dosage: 90 MG  2 PER DAY    SUBCUTANEOUS
     Route: 058
     Dates: start: 20040225, end: 20041014
  2. VIREAD [Suspect]
     Indication: DRUG USE FOR UNKNOWN INDICATION
     Dosage: 300 MG DAILY ORAL
     Route: 048
     Dates: start: 20030315
  3. ZERIT [Concomitant]
  4. RESCRIPTOR [Concomitant]

REACTIONS (4)
  - BLOOD CREATININE INCREASED [None]
  - CREATININE RENAL CLEARANCE DECREASED [None]
  - PROTEIN URINE PRESENT [None]
  - RENAL FAILURE [None]
